FAERS Safety Report 9172963 (Version 3)
Quarter: 2013Q4

REPORT INFORMATION
  Report Type: Spontaneous
  Country: DE (occurrence: DE)
  Receive Date: 20130320
  Receipt Date: 20131030
  Transmission Date: 20140711
  Serious: Yes (Hospitalization, Other)
  Sender: FDA-Public Use
  Company Number: DE-AMGEN-DEUSP2013019032

PATIENT
  Age: 77 Year
  Sex: Female

DRUGS (15)
  1. ENBREL [Suspect]
     Indication: RHEUMATOID ARTHRITIS
     Dosage: 50 MG, WEEKLY
     Route: 058
     Dates: start: 201008
  2. PARADEX                            /00220901/ [Concomitant]
     Dosage: UNK
  3. BRILIQUE [Concomitant]
     Dosage: UNK
  4. VALSARTAN [Concomitant]
     Dosage: UNK
  5. CARVEDILOL [Concomitant]
     Dosage: UNK
  6. DIGITOXIN [Concomitant]
     Dosage: UNK, 1X/DAY
  7. TORASEMIDE [Concomitant]
     Dosage: UNK, 1X/DAY
  8. JANUVIA [Concomitant]
     Dosage: UNK UNK, 1X/DAY
  9. JANUVIA [Concomitant]
     Dosage: UNK, 1X/DAY
  10. ATORVASTATIN [Concomitant]
     Dosage: UNK
  11. PREDNISOLON                        /00016201/ [Concomitant]
     Dosage: 5 MG, UNK
  12. VITAMIN B12                        /00056201/ [Concomitant]
     Dosage: UNK
  13. DEKRISTOL [Concomitant]
     Dosage: UNK
  14. HUMINSULIN [Concomitant]
     Dosage: UNK
  15. LANTUS [Concomitant]
     Dosage: UNK

REACTIONS (3)
  - Myocardial infarction [Recovered/Resolved with Sequelae]
  - Acute coronary syndrome [Recovered/Resolved]
  - Gastritis erosive [Unknown]
